FAERS Safety Report 16798741 (Version 4)
Quarter: 2019Q3

REPORT INFORMATION
  Report Type: Spontaneous
  Country: BE (occurrence: BE)
  Receive Date: 20190912
  Receipt Date: 20190930
  Transmission Date: 20191005
  Serious: Yes (Other)
  Sender: FDA-Public Use
  Company Number: BE-PFIZER INC-2019373671

PATIENT
  Age: 58 Year
  Sex: Female

DRUGS (5)
  1. DOXORUBICIN HCL [Suspect]
     Active Substance: DOXORUBICIN HYDROCHLORIDE
     Indication: THYMOMA
     Dosage: UNK
  2. CYCLOPHOSPHAMIDE. [Suspect]
     Active Substance: CYCLOPHOSPHAMIDE
     Indication: THYMOMA
     Dosage: UNK
  3. ETOPOSIDE. [Suspect]
     Active Substance: ETOPOSIDE
     Indication: THYMOMA
     Dosage: UNK
  4. IFOSFAMIDE. [Suspect]
     Active Substance: IFOSFAMIDE
     Indication: THYMOMA
     Dosage: UNK
  5. CISPLATIN. [Suspect]
     Active Substance: CISPLATIN
     Indication: THYMOMA
     Dosage: UNK

REACTIONS (3)
  - Thrombocytopenia [Unknown]
  - Myelodysplastic syndrome [Unknown]
  - Second primary malignancy [Unknown]
